FAERS Safety Report 10043586 (Version 4)
Quarter: 2014Q3

REPORT INFORMATION
  Report Type: Report from Study
  Country: US (occurrence: US)
  Receive Date: 20140328
  Receipt Date: 20140711
  Transmission Date: 20150326
  Serious: Yes (Death, Hospitalization, Other)
  Sender: FDA-Public Use
  Company Number: US-ALEXION-A201305129

PATIENT

DRUGS (5)
  1. FOLIC ACID. [Concomitant]
     Active Substance: FOLIC ACID
     Indication: PRODUCT USED FOR UNKNOWN INDICATION
     Dosage: 1 MG, 2 TABLETS QAM
     Route: 065
     Dates: start: 20130801
  2. OXYGEN. [Concomitant]
     Active Substance: OXYGEN
     Indication: PRODUCT USED FOR UNKNOWN INDICATION
     Route: 065
  3. SOLIRIS [Suspect]
     Active Substance: ECULIZUMAB
     Indication: PAROXYSMAL NOCTURNAL HAEMOGLOBINURIA
     Dosage: 900 MG, Q2W
     Route: 042
     Dates: start: 20130718
  4. PREDNISONE. [Concomitant]
     Active Substance: PREDNISONE
     Indication: PRODUCT USED FOR UNKNOWN INDICATION
     Dosage: UNK
     Route: 065
     Dates: start: 20130609
  5. INSULIN GLARGINE [Concomitant]
     Active Substance: INSULIN GLARGINE
     Indication: PRODUCT USED FOR UNKNOWN INDICATION
     Route: 065

REACTIONS (20)
  - Confusional state [Recovered/Resolved]
  - Dyspnoea [Unknown]
  - Fatigue [Not Recovered/Not Resolved]
  - Mucous stools [Unknown]
  - Septic shock [Unknown]
  - Quality of life decreased [Unknown]
  - Glomerular filtration rate decreased [Unknown]
  - Rhonchi [Unknown]
  - Haemoglobinuria [Unknown]
  - Sinus tachycardia [Unknown]
  - Clostridium difficile infection [Unknown]
  - Hypertension [Unknown]
  - Oedema peripheral [Unknown]
  - Decreased appetite [Unknown]
  - Agitation [Unknown]
  - Lung disorder [Unknown]
  - Death [Fatal]
  - Asthenia [Not Recovered/Not Resolved]
  - Bone marrow disorder [Unknown]
  - Acute myocardial infarction [Unknown]

NARRATIVE: CASE EVENT DATE: 20140528
